FAERS Safety Report 10973877 (Version 1)
Quarter: 2015Q1

REPORT INFORMATION
  Report Type: Spontaneous
  Country: US (occurrence: None)
  Receive Date: 20150331
  Receipt Date: 20150331
  Transmission Date: 20150721
  Serious: Yes (Disabling)
  Sender: FDA-Public Use
  Company Number: None

PATIENT
  Age: 58 Year
  Sex: Female

DRUGS (1)
  1. CELECOXIB 200MG [Suspect]
     Active Substance: CELECOXIB
     Indication: ARTHRITIS
     Dosage: 1 CAPSULE
     Route: 048
     Dates: start: 20150301, end: 20150330

REACTIONS (3)
  - Pain [None]
  - Movement disorder [None]
  - Product substitution issue [None]

NARRATIVE: CASE EVENT DATE: 20150226
